FAERS Safety Report 17967387 (Version 1)
Quarter: 2020Q2

REPORT INFORMATION
  Report Type: Spontaneous
  Country: US (occurrence: US)
  Receive Date: 20200630
  Receipt Date: 20200630
  Transmission Date: 20200714
  Serious: Yes (Hospitalization)
  Sender: FDA-Public Use
  Company Number: None

PATIENT
  Age: 7 Year
  Sex: Female

DRUGS (2)
  1. OMEPRAZOLE, CETIRIZINE, FAMOTIDINE, CYPROHEPTADINE [Concomitant]
  2. HUMIRA [Suspect]
     Active Substance: ADALIMUMAB
     Indication: CROHN^S DISEASE
     Dosage: ?          OTHER FREQUENCY:EVERY 7 DAYS;?
     Route: 058
     Dates: start: 20191119

REACTIONS (3)
  - Vomiting [None]
  - Pyrexia [None]
  - Peripheral swelling [None]

NARRATIVE: CASE EVENT DATE: 20200601
